FAERS Safety Report 5657963-6 (Version None)
Quarter: 2008Q1

REPORT INFORMATION
  Report Type: 
  Country: None (occurrence: None)
  Receive Date: 20080310
  Receipt Date: 20080226
  Transmission Date: 20080703
  Serious: Yes (Other)
  Sender: FDA-Public Use
  Company Number: PHBS2008NL02710

PATIENT
  Age: 62 Year
  Sex: Female

DRUGS (2)
  1. LESCOL [Suspect]
     Dosage: 20 MG, BID
     Route: 048
     Dates: end: 20080201
  2. LESCOL XL [Suspect]
     Dosage: 80 MG, QD
     Route: 048
     Dates: start: 20080201

REACTIONS (2)
  - CHOLELITHIASIS [None]
  - PYREXIA [None]
